FAERS Safety Report 4913703-7 (Version None)
Quarter: 2006Q1

REPORT INFORMATION
  Report Type: 
  Country: None (occurrence: None)
  Receive Date: 20060210
  Receipt Date: 20060202
  Transmission Date: 20060701
  Serious: Yes (Death)
  Sender: FDA-Public Use
  Company Number: A0559031B

PATIENT
  Sex: 0

DRUGS (2)
  1. ZOFRAN [Suspect]
     Indication: NAUSEA
     Dosage: TRANSPLACENTARY
     Route: 064
     Dates: start: 20040901, end: 20040101
  2. METOCLOPRAMIDE HCL [Suspect]
     Indication: NAUSEA
     Dosage: TRANSPLACENTARY
     Route: 064
     Dates: start: 20040901, end: 20040101

REACTIONS (2)
  - DRUG EXPOSURE DURING PREGNANCY [None]
  - INTRA-UTERINE DEATH [None]
